FAERS Safety Report 18832543 (Version 3)
Quarter: 2025Q4

REPORT INFORMATION
  Report Type: Report from Study
  Country: US (occurrence: US)
  Receive Date: 20210203
  Receipt Date: 20251010
  Transmission Date: 20260117
  Serious: Yes (Death, Hospitalization, Other)
  Sender: ROCHE
  Company Number: US-ROCHE-2674437

PATIENT
  Age: 49 Year
  Sex: Female

DRUGS (2)
  1. RITUXAN [Suspect]
     Active Substance: RITUXIMAB
     Indication: Immune thrombocytopenia
     Dosage: WEEK 0, 2 EVERY 6 MONTHS
     Route: 042
     Dates: start: 202012
  2. RITUXAN [Suspect]
     Active Substance: RITUXIMAB
     Indication: Systemic lupus erythematosus

REACTIONS (4)
  - Intentional product use issue [Unknown]
  - Pneumonia [Unknown]
  - Oxygen consumption decreased [Unknown]
  - Death [Fatal]

NARRATIVE: CASE EVENT DATE: 20210211
